FAERS Safety Report 10509091 (Version 2)
Quarter: 2014Q4

REPORT INFORMATION
  Report Type: Spontaneous
  Country: US (occurrence: US)
  Receive Date: 20141009
  Receipt Date: 20141009
  Transmission Date: 20150528
  Serious: Yes (Hospitalization)
  Sender: FDA-Public Use
  Company Number: US-EXELIXIS-CABO-13003153

PATIENT
  Sex: Male
  Weight: 97.7 kg

DRUGS (3)
  1. COMETRIQ [Suspect]
     Active Substance: CABOZANTINIB S-MALATE
     Dosage: 140 MG, QD
     Route: 048
  2. COMETRIQ [Suspect]
     Active Substance: CABOZANTINIB S-MALATE
     Dosage: 80 MG, QD
     Route: 048
     Dates: start: 20130716
  3. COMETRIQ [Suspect]
     Active Substance: CABOZANTINIB S-MALATE
     Indication: RENAL CANCER
     Dosage: 140 MG, QD
     Route: 048
     Dates: start: 20130426, end: 20130715

REACTIONS (8)
  - Influenza [Unknown]
  - Dysgeusia [Not Recovered/Not Resolved]
  - Unevaluable event [Unknown]
  - Blister [Not Recovered/Not Resolved]
  - Dry mouth [Not Recovered/Not Resolved]
  - Ageusia [Unknown]
  - Off label use [Unknown]
  - Diarrhoea [Not Recovered/Not Resolved]

NARRATIVE: CASE EVENT DATE: 2013
